FAERS Safety Report 14079199 (Version 3)
Quarter: 2017Q4

REPORT INFORMATION
  Report Type: Spontaneous
  Country: JP (occurrence: JP)
  Receive Date: 20171012
  Receipt Date: 20171208
  Transmission Date: 20180321
  Serious: Yes (Hospitalization)
  Sender: FDA-Public Use
  Company Number: JP-AMGEN-JPNSP2017154695

PATIENT
  Age: 68 Year
  Sex: Female

DRUGS (8)
  1. ZOLEDRONIC ACID [Suspect]
     Active Substance: ZOLEDRONIC ACID
     Dosage: 4 MG, ONCE EVERY 4 WK
     Route: 042
  2. LOXOPROFEN [Concomitant]
     Active Substance: LOXOPROFEN
     Dosage: UNK
  3. RANMARK [Suspect]
     Active Substance: DENOSUMAB
     Indication: PRODUCT USED FOR UNKNOWN INDICATION
     Dosage: 120 MG, Q3WK (FOR EIGHT MONTHS)
     Route: 065
     Dates: start: 20140811, end: 20150330
  4. NAPROXEN. [Concomitant]
     Active Substance: NAPROXEN
     Indication: CANCER PAIN
     Dosage: 300 MG, QD
  5. ZOLEDRONIC ACID [Suspect]
     Active Substance: ZOLEDRONIC ACID
     Indication: PROPHYLAXIS
     Dosage: 4 MG, Q4WK (FOR SIX MONTHS)
     Route: 042
  6. OXICODONE ACCORD [Concomitant]
     Active Substance: OXYCODONE
     Indication: PAIN IN JAW
     Dosage: 10 MG, UNK
  7. OXICODONE ACCORD [Concomitant]
     Active Substance: OXYCODONE
     Indication: CANCER PAIN
     Dosage: 70 MG, QD
  8. LOXOPROFEN [Concomitant]
     Active Substance: LOXOPROFEN
     Indication: PAIN IN JAW
     Dosage: 60 MG, UNK

REACTIONS (1)
  - Osteonecrosis of jaw [Recovering/Resolving]

NARRATIVE: CASE EVENT DATE: 20150420
